FAERS Safety Report 20773726 (Version 1)
Quarter: 2022Q2

REPORT INFORMATION
  Report Type: Spontaneous
  Country: CA (occurrence: CA)
  Receive Date: 20220502
  Receipt Date: 20220502
  Transmission Date: 20220721
  Serious: Yes (Other)
  Sender: FDA-Public Use
  Company Number: None

PATIENT
  Age: 76 Year
  Sex: Female

DRUGS (9)
  1. CARBOPLATIN [Suspect]
     Active Substance: CARBOPLATIN
     Indication: Serous cystadenocarcinoma ovary
     Route: 042
  2. LETROZOLE [Suspect]
     Active Substance: LETROZOLE
     Indication: Serous cystadenocarcinoma ovary
  3. GEMCITABINE [Suspect]
     Active Substance: GEMCITABINE
     Indication: Serous cystadenocarcinoma ovary
  4. FULVESTRANT [Suspect]
     Active Substance: FULVESTRANT
     Indication: Serous cystadenocarcinoma ovary
     Dosage: 2 EVERY 1 DAYS
  5. DOXORUBICIN HYDROCHLORIDE [Suspect]
     Active Substance: DOXORUBICIN HYDROCHLORIDE
     Indication: Serous cystadenocarcinoma ovary
  6. METFORMIN [Suspect]
     Active Substance: METFORMIN HYDROCHLORIDE
     Indication: Serous cystadenocarcinoma ovary
  7. PALBOCICLIB [Suspect]
     Active Substance: PALBOCICLIB
     Indication: Serous cystadenocarcinoma ovary
     Route: 048
  8. MEGACE [Suspect]
     Active Substance: MEGESTROL ACETATE
     Indication: Serous cystadenocarcinoma ovary
  9. TAMOXIFEN [Suspect]
     Active Substance: TAMOXIFEN
     Indication: Serous cystadenocarcinoma ovary

REACTIONS (4)
  - Malignant neoplasm progression [Unknown]
  - Serous cystadenocarcinoma ovary [Unknown]
  - Condition aggravated [Unknown]
  - Off label use [Unknown]
